FAERS Safety Report 6688802-2 (Version None)
Quarter: 2010Q2

REPORT INFORMATION
  Report Type: 
  Country: None (occurrence: None)
  Receive Date: 20100420
  Receipt Date: 20100406
  Transmission Date: 20101027
  Serious: Yes (Hospitalization, Other)
  Sender: FDA-Public Use
  Company Number: AU-ELI_LILLY_AND_COMPANY-AU201003004616

PATIENT
  Sex: Female

DRUGS (1)
  1. FORTEO [Suspect]
     Indication: OSTEOPOROSIS
     Dosage: UNK, DAILY (1/D)
     Route: 065
     Dates: start: 20100112

REACTIONS (10)
  - BACK PAIN [None]
  - BREAST CANCER [None]
  - BREAST MASS [None]
  - CATARACT [None]
  - EATING DISORDER [None]
  - GLAUCOMA [None]
  - JAW FRACTURE [None]
  - LUNG DISORDER [None]
  - VISUAL ACUITY REDUCED [None]
  - WEIGHT DECREASED [None]
